FAERS Safety Report 9316392 (Version 2)
Quarter: 2013Q2

REPORT INFORMATION
  Report Type: Spontaneous
  Country: DE (occurrence: DE)
  Receive Date: 20130530
  Receipt Date: 20130624
  Transmission Date: 20140414
  Serious: Yes (Other)
  Sender: FDA-Public Use
  Company Number: DE-UCBSA-086894

PATIENT
  Sex: Female
  Weight: 78 kg

DRUGS (3)
  1. CIMZIA [Suspect]
     Indication: RHEUMATOID ARTHRITIS
     Route: 058
     Dates: start: 20101020, end: 20130515
  2. MTX [Concomitant]
     Indication: RHEUMATOID ARTHRITIS
     Route: 048
     Dates: start: 200511
  3. CALCIMAGON D3 [Concomitant]
     Indication: OSTEOPENIA
     Dosage: 400/50 IU/MG, 2 CHEWABLE TABLETS PER DAY
     Dates: start: 2005

REACTIONS (1)
  - Psoriasis [Not Recovered/Not Resolved]
